FAERS Safety Report 24173056 (Version 1)
Quarter: 2024Q3

REPORT INFORMATION
  Report Type: Spontaneous
  Country: US (occurrence: US)
  Receive Date: 20240805
  Receipt Date: 20240805
  Transmission Date: 20241017
  Serious: No
  Sender: COSETTE PHARMACEUTICALS
  Company Number: US-COSETTE-CP2024US000189

PATIENT
  Age: 66 Year
  Sex: Male
  Weight: 165 kg

DRUGS (1)
  1. CLOMIPHENE CITRATE [Suspect]
     Active Substance: CLOMIPHENE CITRATE
     Indication: Blood testosterone decreased
     Route: 048
     Dates: start: 2024

REACTIONS (4)
  - Product use in unapproved indication [Unknown]
  - Product prescribing issue [Unknown]
  - Product use issue [Unknown]
  - Off label use [None]
